FAERS Safety Report 6705640-2 (Version None)
Quarter: 2010Q2

REPORT INFORMATION
  Report Type: 
  Country: None (occurrence: None)
  Receive Date: 20100503
  Receipt Date: 20100423
  Transmission Date: 20101027
  Serious: No
  Sender: FDA-Public Use
  Company Number: 2009BI022694

PATIENT
  Sex: Female

DRUGS (2)
  1. TYSABRI [Suspect]
     Indication: MULTIPLE SCLEROSIS
     Route: 042
     Dates: start: 20071205, end: 20080208
  2. TYSABRI [Suspect]
     Route: 042
     Dates: start: 20090209, end: 20090721

REACTIONS (9)
  - AMNESIA [None]
  - BEDRIDDEN [None]
  - FAECAL INCONTINENCE [None]
  - INSOMNIA [None]
  - MEMORY IMPAIRMENT [None]
  - MOTOR DYSFUNCTION [None]
  - MULTIPLE SCLEROSIS RELAPSE [None]
  - PERSONALITY CHANGE [None]
  - URINARY INCONTINENCE [None]
